FAERS Safety Report 9836741 (Version 2)
Quarter: 2014Q1

REPORT INFORMATION
  Report Type: Spontaneous
  Country: JP (occurrence: JP)
  Receive Date: 20140123
  Receipt Date: 20140224
  Transmission Date: 20141002
  Serious: Yes (Other)
  Sender: FDA-Public Use
  Company Number: PHHY2014JP007186

PATIENT
  Age: 42 Year
  Sex: Female

DRUGS (2)
  1. VOLTAREN [Suspect]
     Indication: UPPER RESPIRATORY TRACT INFECTION
     Dosage: 75 MG, QD
     Route: 048
     Dates: start: 20140106, end: 20140115
  2. FLOMOX [Concomitant]
     Dosage: UNK UKN, UNK
     Route: 048

REACTIONS (2)
  - Body temperature decreased [Recovered/Resolved]
  - Chills [Unknown]
